FAERS Safety Report 6311713-9 (Version None)
Quarter: 2009Q3

REPORT INFORMATION
  Report Type: 
  Country: None (occurrence: None)
  Receive Date: 20090813
  Receipt Date: 20090813
  Transmission Date: 20100115
  Serious: Yes (Death, Hospitalization)
  Sender: FDA-Public Use
  Company Number: None

PATIENT
  Sex: Male

DRUGS (3)
  1. VFEND [Suspect]
     Indication: PNEUMONIA
     Dosage: 600 MG. 2X DAY X 1 DAY DAILY 400 MG. 2X DAY X 14 DAY  ORALY
     Dates: start: 20081007, end: 20081012
  2. LOVASTATIN [Concomitant]
  3. PAMIDRONATE DISODIUM [Concomitant]

REACTIONS (4)
  - AGITATION [None]
  - CONFUSIONAL STATE [None]
  - HAEMATOMA [None]
  - HALLUCINATION [None]
